FAERS Safety Report 8104295 (Version 9)
Quarter: 2013Q1

REPORT INFORMATION
  Report Type: Spontaneous
  Country: US (occurrence: US)
  Receive Date: 20110824
  Receipt Date: 20130103
  Transmission Date: 20140127
  Serious: Yes (Hospitalization, Disabling, Other)
  Sender: FDA-Public Use
  Company Number: US-009507513-1108USA02813

PATIENT
  Sex: 0

DRUGS (8)
  1. FOSAMAX [Suspect]
     Indication: OSTEOPENIA
     Dosage: 10 MG, QD
     Route: 048
     Dates: start: 19971215, end: 19990305
  2. FOSAMAX [Suspect]
     Dosage: 10 MG, QD
     Route: 048
     Dates: start: 19991021, end: 200101
  3. FOSAMAX [Suspect]
     Dosage: 70 MG, QW
     Route: 048
     Dates: start: 200102, end: 200910
  4. FOSAMAX [Suspect]
     Indication: OSTEOPENIA
     Dosage: 70 MG, QW
     Route: 048
     Dates: start: 20090119, end: 20100219
  5. FOSAMAX PLUS D [Suspect]
     Indication: OSTEOPENIA
     Dosage: 70MG/2800
     Route: 048
     Dates: start: 200604, end: 20081223
  6. CALCIUM (UNSPECIFIED) (+) VITAMIN D (UNSPECIFIED) [Concomitant]
     Dates: start: 1997
  7. CALCIUM (UNSPECIFIED) [Concomitant]
     Indication: BONE DISORDER
     Dosage: 600 DF, BID
     Dates: start: 1999
  8. MELOXICAM [Concomitant]
     Indication: OSTEOARTHRITIS
     Dosage: 15 MG, PRN
     Dates: start: 1999

REACTIONS (71)
  - Femur fracture [Unknown]
  - Breast mass [Unknown]
  - Impaired healing [Recovered/Resolved with Sequelae]
  - Hip fracture [Unknown]
  - Low turnover osteopathy [Not Recovered/Not Resolved]
  - Back pain [Not Recovered/Not Resolved]
  - Femur fracture [Recovered/Resolved with Sequelae]
  - Vitamin D deficiency [Unknown]
  - Spinal osteoarthritis [Unknown]
  - Osteoarthritis [Not Recovered/Not Resolved]
  - Adverse event [Unknown]
  - Hypertension [Not Recovered/Not Resolved]
  - Blood cholesterol increased [Unknown]
  - Breast disorder female [Unknown]
  - Bursitis [Unknown]
  - Kyphosis [Unknown]
  - Spinal column stenosis [Unknown]
  - Intervertebral disc degeneration [Unknown]
  - Anxiety [Unknown]
  - Arthritis [Not Recovered/Not Resolved]
  - Osteoarthritis [Not Recovered/Not Resolved]
  - Scoliosis [Unknown]
  - Blood pressure increased [Unknown]
  - Sinusitis [Unknown]
  - Hypokalaemia [Unknown]
  - Oestrogen deficiency [Unknown]
  - Bursitis [Unknown]
  - Adverse drug reaction [Unknown]
  - Myositis [Unknown]
  - Glucose tolerance test abnormal [Unknown]
  - Hypercholesterolaemia [Unknown]
  - Body tinea [Unknown]
  - Hypovolaemia [Unknown]
  - Iron deficiency anaemia [Unknown]
  - Essential hypertension [Not Recovered/Not Resolved]
  - Rhinitis seasonal [Unknown]
  - Supraventricular tachycardia [Unknown]
  - Seasonal allergy [Unknown]
  - Chest pain [Unknown]
  - Oropharyngeal pain [Unknown]
  - Temporomandibular joint syndrome [Unknown]
  - Chest pain [Unknown]
  - Fibrocystic breast disease [Unknown]
  - Fibroadenoma of breast [Unknown]
  - Vertebral foraminal stenosis [Unknown]
  - Arthropathy [Unknown]
  - Neoplasm skin [Unknown]
  - Skin infection [Unknown]
  - Hyperlipidaemia [Unknown]
  - Pollakiuria [Unknown]
  - Micturition urgency [Unknown]
  - Ear disorder [Unknown]
  - Skin papilloma [Unknown]
  - Ear pain [Unknown]
  - Otitis media acute [Unknown]
  - Otitis externa [Unknown]
  - Osteoporosis [Unknown]
  - Gait disturbance [Unknown]
  - Chronic obstructive pulmonary disease [Not Recovered/Not Resolved]
  - Nervousness [Unknown]
  - Asthma [Unknown]
  - Drug ineffective [Unknown]
  - Myalgia [Unknown]
  - Musculoskeletal pain [Unknown]
  - Headache [Unknown]
  - Rash [Unknown]
  - Arthralgia [Unknown]
  - Arthralgia [Unknown]
  - Gastrooesophageal reflux disease [Not Recovered/Not Resolved]
  - Urticaria [Unknown]
  - Pain in extremity [Unknown]
